FAERS Safety Report 7268020-X (Version None)
Quarter: 2011Q1

REPORT INFORMATION
  Report Type: 
  Country: None (occurrence: None)
  Receive Date: 20110201
  Receipt Date: 20110117
  Transmission Date: 20110831
  Serious: Yes (Life-Threatening, Hospitalization, Other)
  Sender: FDA-Public Use
  Company Number: PHHY2011AT03574

PATIENT
  Age: 81 Year
  Sex: Female

DRUGS (19)
  1. METAMIZOL [Concomitant]
     Dosage: 20 DROPS
  2. QUETIAPINE [Concomitant]
     Dosage: 25 MG
  3. VITAMIN D [Concomitant]
     Dosage: 800 I.E
  4. METOCLOPRAMID [Concomitant]
     Route: 048
  5. ASPIRIN [Concomitant]
     Dosage: 100 MG
  6. TRAMADOL HCL [Concomitant]
     Dosage: RETARD
  7. ENOXAPARIN [Concomitant]
     Dosage: 40 MG
     Route: 058
  8. CITALOPRAM [Concomitant]
     Dosage: 20 MG
  9. BROTIZOLAM [Concomitant]
     Dosage: 0.25 MG
  10. KALCIUM [Concomitant]
     Dosage: 1000 MG
  11. KALIORAL [Concomitant]
  12. LASIX [Concomitant]
     Dosage: 30 MG RETARD
  13. PANTOPRAZOLE [Concomitant]
     Dosage: 40 MG
  14. ALENDRONIC ACID [Concomitant]
     Dosage: 70 MG
  15. FOSFOMYCIN SANDOZ [Suspect]
     Dosage: 2X8 G
  16. CEFUROXIME [Suspect]
     Dosage: 4.5 MG
  17. FOLSAN [Concomitant]
     Dosage: 5 MG
  18. LISINOPRIL [Concomitant]
     Dosage: 5 MG
  19. POTASSIUM SUPPLEMENTS [Concomitant]

REACTIONS (5)
  - HYPOKALAEMIA [None]
  - VERTIGO [None]
  - FATIGUE [None]
  - INFLAMMATORY MARKER INCREASED [None]
  - PROTEIN TOTAL DECREASED [None]
